FAERS Safety Report 22205202 (Version 1)
Quarter: 2023Q2

REPORT INFORMATION
  Report Type: Spontaneous
  Country: US (occurrence: US)
  Receive Date: 20230413
  Receipt Date: 20230413
  Transmission Date: 20230721
  Serious: No
  Sender: FDA-Public Use
  Company Number: US-ELI_LILLY_AND_COMPANY-US202304005240

PATIENT
  Sex: Female

DRUGS (2)
  1. BAQSIMI [Suspect]
     Active Substance: GLUCAGON
     Indication: Hypoglycaemia
     Dosage: UNK UNK, UNKNOWN
     Route: 065
  2. BAQSIMI [Suspect]
     Active Substance: GLUCAGON
     Dosage: UNK UNK, UNKNOWN
     Route: 065

REACTIONS (2)
  - Hypoglycaemia [Unknown]
  - Incorrect dose administered [Unknown]
